FAERS Safety Report 8561891 (Version 3)
Quarter: 2013Q1

REPORT INFORMATION
  Report Type: Spontaneous
  Country: US (occurrence: US)
  Receive Date: 20120515
  Receipt Date: 20130325
  Transmission Date: 20140127
  Serious: Yes (Other)
  Sender: FDA-Public Use
  Company Number: US-SANOFI-AVENTIS-2012SA033115

PATIENT
  Age: 57 Year
  Sex: Male

DRUGS (2)
  1. SOLOSTAR [Suspect]
     Indication: TYPE 1 DIABETES MELLITUS
     Dates: start: 2004
  2. LANTUS [Suspect]
     Indication: TYPE 1 DIABETES MELLITUS
     Dosage: 8 TO 15 UNITS TWICE A DAY
     Route: 058
     Dates: start: 2004

REACTIONS (4)
  - Diabetic coma [Unknown]
  - Diabetic eye disease [Unknown]
  - Ill-defined disorder [Unknown]
  - Blood glucose increased [Unknown]
